FAERS Safety Report 6395319-1 (Version None)
Quarter: 2009Q4

REPORT INFORMATION
  Report Type: 
  Country: None (occurrence: None)
  Receive Date: 20091009
  Receipt Date: 20091005
  Transmission Date: 20100525
  Serious: Yes (Death)
  Sender: FDA-Public Use
  Company Number: B0550106A

PATIENT
  Sex: Female

DRUGS (5)
  1. LAMICTAL [Suspect]
     Indication: BIPOLAR I DISORDER
     Dosage: 25MG PER DAY
     Route: 048
     Dates: start: 20081121, end: 20081126
  2. LIMAS [Concomitant]
     Indication: BIPOLAR I DISORDER
     Dosage: 300MG PER DAY
     Route: 048
     Dates: start: 19960705, end: 20081126
  3. NORTRIPTYLINE HCL [Concomitant]
     Indication: BIPOLAR I DISORDER
     Dosage: 20MG PER DAY
     Route: 048
     Dates: start: 19960705, end: 20081126
  4. DEPAS [Concomitant]
     Indication: BIPOLAR I DISORDER
     Dosage: 1MG PER DAY
     Route: 048
     Dates: start: 19960705, end: 20081126
  5. DEPAKENE [Concomitant]
     Indication: MOOD SWINGS
     Route: 048
     Dates: start: 19960705, end: 20081121

REACTIONS (1)
  - COMPLETED SUICIDE [None]
